FAERS Safety Report 4328646-X (Version None)
Quarter: 2004Q2

REPORT INFORMATION
  Report Type: 
  Country: None (occurrence: None)
  Receive Date: 20040401
  Receipt Date: 20040305
  Transmission Date: 20050107
  Serious: Yes (Other)
  Sender: FDA-Public Use
  Company Number: PHEH2004US02759

PATIENT
  Age: 47 Year
  Sex: Male

DRUGS (5)
  1. ZOMETA [Suspect]
     Indication: MULTIPLE MYELOMA
     Dosage: 4 MG EVERY 4 WEEKS
     Route: 042
     Dates: start: 20021219, end: 20040128
  2. DEXAMETHASONE [Concomitant]
     Indication: MULTIPLE MYELOMA
     Dosage: 40 MG X 4 DAYS EVERY 2 WEEKS
     Dates: start: 20030301, end: 20031201
  3. THALOMID [Concomitant]
     Indication: MULTIPLE MYELOMA
     Dosage: 20 MG, QHS
     Route: 048
     Dates: start: 20030301
  4. MELPHALAN [Concomitant]
     Indication: MULTIPLE MYELOMA
     Dates: start: 20021219, end: 20030201
  5. PREDNISONE [Concomitant]
     Dosage: 100 MG QD FOR 4 DAYS
     Dates: start: 20021219, end: 20030201

REACTIONS (4)
  - OSTEOMYELITIS [None]
  - OSTEONECROSIS [None]
  - TOOTH DISORDER [None]
  - TOOTH EXTRACTION [None]
